FAERS Safety Report 12153060 (Version 1)
Quarter: 2016Q1

REPORT INFORMATION
  Report Type: Spontaneous
  Country: TR (occurrence: TR)
  Receive Date: 20160305
  Receipt Date: 20160305
  Transmission Date: 20160526
  Serious: Yes (Death, Hospitalization, Other)
  Sender: FDA-Public Use
  Company Number: TR-AMGEN-TURSP2016026148

PATIENT
  Age: 66 Year
  Sex: Female

DRUGS (1)
  1. ENBREL [Suspect]
     Active Substance: ETANERCEPT
     Indication: ANKYLOSING SPONDYLITIS
     Dosage: 25 MG, 2X/WEEK
     Route: 058
     Dates: start: 20110504, end: 20160211

REACTIONS (2)
  - Respiratory failure [Fatal]
  - Neck deformity [Unknown]

NARRATIVE: CASE EVENT DATE: 20160202
